FAERS Safety Report 21473592 (Version 4)
Quarter: 2022Q4

REPORT INFORMATION
  Report Type: Spontaneous
  Country: CN (occurrence: CN)
  Receive Date: 20221018
  Receipt Date: 20221209
  Transmission Date: 20230112
  Serious: Yes (Death, Other)
  Sender: FDA-Public Use
  Company Number: CN-PFIZER INC-PV202200083346

PATIENT
  Age: 87 Year
  Sex: Female

DRUGS (1)
  1. ZYVOX [Suspect]
     Active Substance: LINEZOLID
     Indication: Pneumonia
     Dosage: 600 MG, TWICE A DAY
     Route: 048
     Dates: start: 20220927, end: 20221009

REACTIONS (4)
  - Septic shock [Fatal]
  - Cardiac failure [Fatal]
  - Pneumonia [Fatal]
  - Blood lactic acid increased [Not Recovered/Not Resolved]

NARRATIVE: CASE EVENT DATE: 20220928
